FAERS Safety Report 6336836-X (Version None)
Quarter: 2009Q3

REPORT INFORMATION
  Report Type: 
  Country: None (occurrence: None)
  Receive Date: 20090828
  Receipt Date: 20090828
  Transmission Date: 20100115
  Serious: Yes (Life-Threatening, Hospitalization, Disabling)
  Sender: FDA-Public Use
  Company Number: None

PATIENT
  Age: 26 Year
  Sex: Female
  Weight: 77.5 kg

DRUGS (1)
  1. YAZ [Suspect]
     Indication: CONTRACEPTION

REACTIONS (6)
  - CENTRAL NERVOUS SYSTEM NECROSIS [None]
  - CEREBRAL VENOUS THROMBOSIS [None]
  - CEREBROVASCULAR DISORDER [None]
  - HYDROCEPHALUS [None]
  - INTRACRANIAL VENOUS SINUS THROMBOSIS [None]
  - OBSTRUCTION [None]
